FAERS Safety Report 10368960 (Version 2)
Quarter: 2014Q3

REPORT INFORMATION
  Report Type: Report from Study
  Country: BR (occurrence: BR)
  Receive Date: 20140807
  Receipt Date: 20140918
  Transmission Date: 20150326
  Serious: Yes (Hospitalization, Other)
  Sender: FDA-Public Use
  Company Number: PHHY2014BR097055

PATIENT
  Sex: Female
  Weight: 60 kg

DRUGS (1)
  1. EXELON PATCH [Suspect]
     Active Substance: RIVASTIGMINE
     Indication: DEMENTIA ALZHEIMER^S TYPE
     Dosage: 4.6 MG (PATCH 5CM2), DAILY
     Route: 062

REACTIONS (12)
  - Influenza [Unknown]
  - Cardiomegaly [Unknown]
  - Pain [Unknown]
  - Pulmonary oedema [Unknown]
  - Diet refusal [Unknown]
  - Hallucination [Recovering/Resolving]
  - Asthenia [Unknown]
  - Cough [Unknown]
  - Fatigue [Unknown]
  - Memory impairment [Unknown]
  - Angina pectoris [Unknown]
  - Drug ineffective [Unknown]
